FAERS Safety Report 4339839-X (Version None)
Quarter: 2004Q2

REPORT INFORMATION
  Report Type: 
  Country: None (occurrence: None)
  Receive Date: 20040412
  Receipt Date: 20040405
  Transmission Date: 20050107
  Serious: Yes (Disabling, Other)
  Sender: FDA-Public Use
  Company Number: 2004-03-0250

PATIENT
  Age: 4 Year
  Sex: Male

DRUGS (1)
  1. AERIUS (DESLORATADINE) SYRUP  LIKE CLARINEX [Suspect]
     Indication: HYPERSENSITIVITY
     Dosage: 1.25MG QD ORAL
     Route: 048
     Dates: start: 20040201

REACTIONS (4)
  - JOINT EFFUSION [None]
  - LIGAMENT INJURY [None]
  - SHOCK [None]
  - TORTICOLLIS [None]
